FAERS Safety Report 18807137 (Version 1)
Quarter: 2021Q1

REPORT INFORMATION
  Report Type: Spontaneous
  Country: JP (occurrence: JP)
  Receive Date: 20210128
  Receipt Date: 20210128
  Transmission Date: 20210419
  Serious: Yes (Other)
  Sender: FDA-Public Use
  Company Number: JP-SA-2021SA007254

PATIENT
  Age: 20 Year
  Sex: Male

DRUGS (7)
  1. ANTEBATE [Concomitant]
     Active Substance: BETAMETHASONE DIPROPIONATE
     Indication: DERMATITIS ATOPIC
     Dosage: 50 G/MONTH, DAILY USE
     Route: 065
     Dates: start: 20200511
  2. PROTOPIC [Concomitant]
     Active Substance: TACROLIMUS
     Indication: DERMATITIS ATOPIC
     Dosage: 50 G/MONTH, DAILY USE
     Route: 065
     Dates: start: 20200511
  3. HIRUDOID [Concomitant]
     Active Substance: GLYCOSAMINOGLYCANS
     Indication: DERMATITIS ATOPIC
     Dosage: 75 G/MONTH, DAILY USE
     Route: 065
     Dates: start: 20200511
  4. DUPIXENT [Suspect]
     Active Substance: DUPILUMAB
     Indication: DERMATITIS ATOPIC
     Dosage: 300 MG (1 A)/DAY
     Route: 058
     Dates: start: 20210109, end: 20210109
  5. DUPIXENT [Suspect]
     Active Substance: DUPILUMAB
     Dosage: 600 MG (2 A)/DAY
     Route: 058
     Dates: start: 20201127, end: 20201127
  6. DUPIXENT [Suspect]
     Active Substance: DUPILUMAB
     Dosage: 300 MG (1 A)/DAY, QOW
     Route: 058
     Dates: start: 20201211, end: 20201225
  7. DUPIXENT [Suspect]
     Active Substance: DUPILUMAB
     Dosage: 300 MG/DAY
     Route: 058
     Dates: start: 20210122

REACTIONS (1)
  - Presyncope [Recovered/Resolved]

NARRATIVE: CASE EVENT DATE: 20210109
